FAERS Safety Report 8958369 (Version 1)
Quarter: 2012Q4

REPORT INFORMATION
  Report Type: 
  Country: US (occurrence: US)
  Receive Date: 20121210
  Receipt Date: 20121210
  Transmission Date: 20130627
  Serious: Yes (Life-Threatening)
  Sender: FDA-Public Use
  Company Number: US-GLAXOSMITHKLINE-A1004562A

PATIENT
  Age: 68 Year
  Sex: Female

DRUGS (4)
  1. SORIATANE [Suspect]
     Indication: PUSTULAR PSORIASIS
     Route: 048
     Dates: start: 2011
  2. SYNTHROID [Concomitant]
  3. BUPROPION [Concomitant]
  4. LISINOPRIL [Concomitant]

REACTIONS (4)
  - Weight decreased [Not Recovered/Not Resolved]
  - Dyspnoea [Unknown]
  - Fatigue [Unknown]
  - Incorrect dose administered [Unknown]
